FAERS Safety Report 6014512-0 (Version None)
Quarter: 2008Q4

REPORT INFORMATION
  Report Type: 
  Country: None (occurrence: None)
  Receive Date: 20081219
  Receipt Date: 20080728
  Transmission Date: 20090506
  Serious: No
  Sender: FDA-Public Use
  Company Number: A0739784A

PATIENT
  Age: 84 Year
  Sex: Male

DRUGS (5)
  1. AVODART [Suspect]
     Dosage: .5MG PER DAY
     Route: 048
     Dates: start: 20040701
  2. PLAVIX [Concomitant]
  3. DIOVAN [Concomitant]
  4. ENABLEX [Concomitant]
  5. COUMADIN [Concomitant]

REACTIONS (1)
  - DRUG INEFFECTIVE [None]
